FAERS Safety Report 21002056 (Version 1)
Quarter: 2022Q2

REPORT INFORMATION
  Report Type: Report from Study
  Country: US (occurrence: US)
  Receive Date: 20220624
  Receipt Date: 20220624
  Transmission Date: 20220721
  Serious: Yes (Other)
  Sender: FDA-Public Use
  Company Number: US-TAKEDA-2022TUS034954

PATIENT
  Age: 76 Year
  Sex: Male

DRUGS (8)
  1. TEDUGLUTIDE [Suspect]
     Active Substance: TEDUGLUTIDE
     Indication: Diarrhoea
     Dosage: 3 MILLIGRAM, QD
     Route: 058
     Dates: start: 202204
  2. TEDUGLUTIDE [Suspect]
     Active Substance: TEDUGLUTIDE
     Indication: Diarrhoea
     Dosage: 3 MILLIGRAM, QD
     Route: 058
     Dates: start: 202204
  3. TEDUGLUTIDE [Suspect]
     Active Substance: TEDUGLUTIDE
     Indication: Diarrhoea
     Dosage: 3 MILLIGRAM, QD
     Route: 058
     Dates: start: 202204
  4. TEDUGLUTIDE [Suspect]
     Active Substance: TEDUGLUTIDE
     Indication: Diarrhoea
     Dosage: 3 MILLIGRAM, QD
     Route: 058
     Dates: start: 202204
  5. TEDUGLUTIDE [Suspect]
     Active Substance: TEDUGLUTIDE
     Indication: Malabsorption
     Dosage: 3 MILLIGRAM, QD
     Route: 058
     Dates: start: 20220427
  6. TEDUGLUTIDE [Suspect]
     Active Substance: TEDUGLUTIDE
     Indication: Malabsorption
     Dosage: 3 MILLIGRAM, QD
     Route: 058
     Dates: start: 20220427
  7. TEDUGLUTIDE [Suspect]
     Active Substance: TEDUGLUTIDE
     Indication: Malabsorption
     Dosage: 3 MILLIGRAM, QD
     Route: 058
     Dates: start: 20220427
  8. TEDUGLUTIDE [Suspect]
     Active Substance: TEDUGLUTIDE
     Indication: Malabsorption
     Dosage: 3 MILLIGRAM, QD
     Route: 058
     Dates: start: 20220427

REACTIONS (7)
  - Vascular device infection [Unknown]
  - Stoma complication [Recovering/Resolving]
  - Skin exfoliation [Unknown]
  - Stoma site pain [Unknown]
  - Condition aggravated [Unknown]
  - Rash [Unknown]
  - Off label use [Unknown]

NARRATIVE: CASE EVENT DATE: 20220501
